FAERS Safety Report 14253411 (Version 2)
Quarter: 2018Q1

REPORT INFORMATION
  Report Type: Report from Study
  Country: US (occurrence: US)
  Receive Date: 20171205
  Receipt Date: 20180215
  Transmission Date: 20180508
  Serious: Yes (Death, Hospitalization, Other)
  Sender: FDA-Public Use
  Company Number: US-PFIZER INC-2017410092

PATIENT
  Age: 75 Year
  Sex: Female

DRUGS (1)
  1. IBRANCE [Suspect]
     Active Substance: PALBOCICLIB
     Indication: BREAST CANCER
     Dosage: 125 MG, DAILY
     Route: 048
     Dates: start: 20170916, end: 20171112

REACTIONS (17)
  - Diarrhoea [Unknown]
  - Rhinorrhoea [Unknown]
  - Weight increased [Unknown]
  - Abdominal pain [Not Recovered/Not Resolved]
  - Dysphonia [Unknown]
  - Body temperature decreased [Unknown]
  - Death [Fatal]
  - Constipation [Not Recovered/Not Resolved]
  - Hypotension [Unknown]
  - Pulmonary oedema [Unknown]
  - Pyrexia [Unknown]
  - White blood cell count decreased [Unknown]
  - Dyspepsia [Unknown]
  - Abdominal distension [Not Recovered/Not Resolved]
  - Cough [Not Recovered/Not Resolved]
  - Renal failure [Unknown]
  - Flatulence [Unknown]

NARRATIVE: CASE EVENT DATE: 2017
